FAERS Safety Report 4683917-2 (Version None)
Quarter: 2005Q2

REPORT INFORMATION
  Report Type: 
  Country: None (occurrence: None)
  Receive Date: 20050607
  Receipt Date: 20050509
  Transmission Date: 20051028
  Serious: Yes (Hospitalization)
  Sender: FDA-Public Use
  Company Number: JP-MERCK-0505USA01637

PATIENT
  Age: 81 Year
  Sex: Female
  Weight: 52 kg

DRUGS (10)
  1. COZAAR [Suspect]
     Indication: HYPERTENSION
     Route: 048
     Dates: start: 20041105, end: 20050420
  2. GLIMICRON [Suspect]
     Indication: DIABETES MELLITUS
     Route: 065
     Dates: start: 20050319, end: 20050420
  3. LIPOVAS [Concomitant]
     Indication: HYPERLIPIDAEMIA
     Route: 048
  4. BEZATOL SR [Concomitant]
     Indication: HYPERLIPIDAEMIA
     Route: 048
     Dates: start: 20050101
  5. MEVALOTIN [Concomitant]
     Indication: HYPERLIPIDAEMIA
     Route: 048
  6. SANDONORM [Concomitant]
     Indication: HYPERTENSION
     Route: 048
     Dates: start: 20050111
  7. BAYCARON [Concomitant]
     Indication: HYPERTENSION
     Route: 048
     Dates: start: 20050221
  8. RIZE [Concomitant]
     Route: 048
  9. LENDORM [Concomitant]
     Route: 048
  10. DEPAS [Concomitant]
     Route: 048

REACTIONS (7)
  - AGITATION [None]
  - DIABETES MELLITUS [None]
  - EXCITABILITY [None]
  - HYPERTENSIVE ENCEPHALOPATHY [None]
  - HYPOGLYCAEMIA [None]
  - OVERDOSE [None]
  - SOMNOLENCE [None]
